FAERS Safety Report 20862748 (Version 1)
Quarter: 2022Q2

REPORT INFORMATION
  Report Type: Report from Study
  Country: US (occurrence: US)
  Receive Date: 20220523
  Receipt Date: 20220523
  Transmission Date: 20220721
  Serious: Yes (Other)
  Sender: FDA-Public Use
  Company Number: US-ABBVIE-22K-163-4400784-00

PATIENT
  Age: 62 Year
  Sex: Female

DRUGS (1)
  1. IMBRUVICA [Suspect]
     Active Substance: IBRUTINIB
     Indication: Chronic lymphocytic leukaemia
     Route: 048
     Dates: start: 20210728

REACTIONS (5)
  - Mastectomy [Unknown]
  - Postoperative thrombosis [Recovering/Resolving]
  - Procedural haemorrhage [Recovering/Resolving]
  - Incision site hypoaesthesia [Unknown]
  - Tissue discolouration [Unknown]

NARRATIVE: CASE EVENT DATE: 20220502
